FAERS Safety Report 25911085 (Version 1)
Quarter: 2025Q4

REPORT INFORMATION
  Report Type: Spontaneous
  Country: EU (occurrence: EU)
  Receive Date: 20251013
  Receipt Date: 20251013
  Transmission Date: 20260117
  Serious: Yes (Hospitalization, Other)
  Sender: MERCK SHARP & DOHME LLC
  Company Number: EU-009507513-2336264

PATIENT
  Age: 46 Year
  Sex: Female

DRUGS (1)
  1. PEMBROLIZUMAB [Suspect]
     Active Substance: PEMBROLIZUMAB
     Indication: Triple negative breast cancer
     Route: 065
     Dates: start: 202304

REACTIONS (4)
  - Enterocolitis [Recovered/Resolved]
  - Clostridium difficile infection [Unknown]
  - Enterocolitis [Unknown]
  - Fluid replacement [Unknown]

NARRATIVE: CASE EVENT DATE: 20230701
